FAERS Safety Report 10194678 (Version 1)
Quarter: 2014Q2

REPORT INFORMATION
  Report Type: Spontaneous
  Country: SG (occurrence: SG)
  Receive Date: 20140526
  Receipt Date: 20140526
  Transmission Date: 20141212
  Serious: Yes (Other)
  Sender: FDA-Public Use
  Company Number: SG-009507513-1405SGP010208

PATIENT
  Age: 66 Year
  Sex: Female

DRUGS (2)
  1. ZOCOR TAB 10 MG [Suspect]
     Dosage: 30 MG
     Route: 048
  2. ZOCOR TAB 10 MG [Suspect]
     Dosage: 20 MG
     Route: 048

REACTIONS (1)
  - Pain [Unknown]
